FAERS Safety Report 4753095-X (Version None)
Quarter: 2005Q3

REPORT INFORMATION
  Report Type: 
  Country: None (occurrence: None)
  Receive Date: 20050826
  Receipt Date: 20050314
  Transmission Date: 20060218
  Serious: Yes (Death, Hospitalization)
  Sender: FDA-Public Use
  Company Number: US-MERCK-0503USA02954

PATIENT
  Age: 70 Year
  Sex: Male
  Weight: 109 kg

DRUGS (9)
  1. VIOXX [Suspect]
     Indication: BACK PAIN
     Route: 048
     Dates: start: 20030101, end: 20040703
  2. VIOXX [Suspect]
     Indication: ARTHRITIS
     Route: 048
     Dates: start: 20030101, end: 20040703
  3. PLAVIX [Concomitant]
     Indication: CEREBROVASCULAR ACCIDENT PROPHYLAXIS
     Route: 065
     Dates: start: 19890101, end: 20040101
  4. SLO-BID [Concomitant]
     Indication: DYSPNOEA
     Route: 065
  5. ASPIRIN [Concomitant]
     Indication: ANTICOAGULANT THERAPY
     Route: 065
     Dates: start: 19890101, end: 20040101
  6. XANAX [Concomitant]
     Indication: ANXIETY
     Route: 065
     Dates: start: 19990101, end: 20040101
  7. GLUCOPHAGE [Concomitant]
     Indication: DIABETES MELLITUS
     Route: 065
  8. LOPRESSOR [Concomitant]
     Indication: HYPERTENSION
     Route: 065
     Dates: start: 19740101, end: 20040101
  9. CELEBREX [Concomitant]
     Indication: PAIN MANAGEMENT
     Route: 065
     Dates: start: 19980101, end: 20030101

REACTIONS (1)
  - MYOCARDIAL INFARCTION [None]
